FAERS Safety Report 13647976 (Version 1)
Quarter: 2017Q2

REPORT INFORMATION
  Report Type: Report from Study
  Country: US (occurrence: US)
  Receive Date: 20170613
  Receipt Date: 20170613
  Transmission Date: 20170830
  Serious: Yes (Other)
  Sender: FDA-Public Use
  Company Number: PHHY2014US182324

PATIENT
  Age: 36 Year
  Sex: Female

DRUGS (1)
  1. ZOFRAN [Suspect]
     Active Substance: ONDANSETRON HYDROCHLORIDE
     Indication: NAUSEA
     Dosage: 8 MG, U
     Route: 065
     Dates: start: 2002

REACTIONS (3)
  - Visual impairment [Unknown]
  - Brain neoplasm [Unknown]
  - Speech disorder [Unknown]

NARRATIVE: CASE EVENT DATE: 20020417
